FAERS Safety Report 19802187 (Version 1)
Quarter: 2021Q3

REPORT INFORMATION
  Report Type: Spontaneous
  Country: US (occurrence: US)
  Receive Date: 20210901
  Receipt Date: 20210901
  Transmission Date: 20211014
  Serious: Yes (Hospitalization)
  Sender: FDA-Public Use
  Company Number: None

PATIENT
  Age: 50 Year
  Sex: Male

DRUGS (3)
  1. TETRABENAZINE 12.5MG SLATE RUN PHARMACEUTICALS [Suspect]
     Active Substance: TETRABENAZINE
     Indication: DYSKINESIA
     Dosage: ?          OTHER FREQUENCY:IN THE MORNING; TAKE 1 TABLET IN MORNING, 2 TABLETS IN AFTERNOON 1 TABLET IN THE EVENING?
     Route: 048
     Dates: start: 20201101
  2. TETRABENAZINE 12.5MG SLATE RUN PHARMACEUTICALS [Suspect]
     Active Substance: TETRABENAZINE
     Dosage: ?          OTHER FREQUENCY:IN THE AFTERNOON;?
     Route: 048
     Dates: start: 20201101
  3. TETRABENAZINE 12.5MG SLATE RUN PHARMACEUTICALS [Suspect]
     Active Substance: TETRABENAZINE
     Dosage: ?          OTHER FREQUENCY:IN THE EVENING;?
     Route: 048
     Dates: start: 20201101

REACTIONS (3)
  - Vomiting [None]
  - Seizure [None]
  - Blood sodium decreased [None]

NARRATIVE: CASE EVENT DATE: 20210701
